FAERS Safety Report 10962931 (Version 1)
Quarter: 2015Q1

REPORT INFORMATION
  Report Type: Spontaneous
  Country: FR (occurrence: FR)
  Receive Date: 20150327
  Receipt Date: 20150327
  Transmission Date: 20150721
  Serious: Yes (Death)
  Sender: FDA-Public Use
  Company Number: FR-IMPAX LABORATORIES, INC-IMP_07861_2014

PATIENT
  Age: 46 Year
  Sex: Male

DRUGS (3)
  1. BACLOFEN. [Suspect]
     Active Substance: BACLOFEN
     Indication: ALCOHOLISM
     Dosage: 20 MG, 4 /DAY
     Route: 048
  2. ALIMEMAZINE [Concomitant]
     Active Substance: TRIMEPRAZINE
     Indication: ALCOHOLISM
     Route: 065
  3. OXAZEPAM. [Concomitant]
     Active Substance: OXAZEPAM
     Indication: ALCOHOLISM
     Route: 065

REACTIONS (7)
  - Toxicity to various agents [Unknown]
  - Hypothermia [Unknown]
  - Multi-organ failure [Fatal]
  - Coma [Unknown]
  - Myocardial infarction [Unknown]
  - Mydriasis [Unknown]
  - Intentional overdose [Unknown]
